FAERS Safety Report 20085911 (Version 3)
Quarter: 2021Q4

REPORT INFORMATION
  Report Type: Other
  Country: CN (occurrence: None)
  Receive Date: 20211118
  Receipt Date: 20211217
  Transmission Date: 20220303
  Serious: Yes (Hospitalization)
  Sender: FDA-Public Use
  Company Number: CN-ROCHE-2955358

PATIENT
  Age: 38 Year
  Sex: Female
  Weight: 69 kg

DRUGS (2)
  1. CAPECITABINE [Suspect]
     Active Substance: CAPECITABINE
     Indication: Breast cancer
     Dosage: 3 TABLETS IN THE MORNING AND 4 TABLETS IN THE EVENING; THE INTERVAL: ABOUT 12 HOURS, CONTINUOUSLY FO
     Route: 048
     Dates: start: 20210827, end: 20210929
  2. LAPATINIB [Suspect]
     Active Substance: LAPATINIB
     Indication: Breast cancer
     Dosage: 5 TABLETS /TIME, CONTINUOUSLY FOR 14 DAYS
     Route: 048
     Dates: start: 20210827, end: 20210929

REACTIONS (1)
  - Jaundice cholestatic [Not Recovered/Not Resolved]

NARRATIVE: CASE EVENT DATE: 20211007
